FAERS Safety Report 16726474 (Version 3)
Quarter: 2019Q4

REPORT INFORMATION
  Report Type: Report from Study
  Country: CA (occurrence: CA)
  Receive Date: 20190821
  Receipt Date: 20191002
  Transmission Date: 20200122
  Serious: Yes (Hospitalization)
  Sender: FDA-Public Use
  Company Number: CA-ACTELION-A-US2019-194415

PATIENT
  Age: 44 Year
  Sex: Female
  Weight: 75 kg

DRUGS (13)
  1. CARIPUL [Suspect]
     Active Substance: EPOPROSTENOL
     Indication: PULMONARY ARTERIAL HYPERTENSION
     Dosage: 45000 NG
     Route: 042
     Dates: start: 20190215, end: 20190913
  2. FUROSEMIDE. [Concomitant]
     Active Substance: FUROSEMIDE
     Dosage: 60 MG, OD
     Dates: start: 201902
  3. XARELTO [Concomitant]
     Active Substance: RIVAROXABAN
     Dosage: 20 MG, OD
     Dates: start: 201902
  4. TADALAFIL. [Concomitant]
     Active Substance: TADALAFIL
     Dosage: 20 MG, OD
     Dates: start: 201902
  5. ZOPLICONE [Concomitant]
     Active Substance: ZOPICLONE
  6. OPSUMIT [Suspect]
     Active Substance: MACITENTAN
     Indication: PULMONARY ARTERIAL HYPERTENSION
     Dosage: 10 MG, OD
     Route: 048
     Dates: start: 201902
  7. PANTOLOC [Concomitant]
     Active Substance: PANTOPRAZOLE SODIUM
  8. K-DUR [Concomitant]
     Active Substance: POTASSIUM CHLORIDE
     Dosage: 20 MG, OD
     Dates: start: 201902
  9. FERROUS [Concomitant]
     Active Substance: IRON
     Dosage: 150 MG, BID
     Dates: start: 201902
  10. WARFARIN [Concomitant]
     Active Substance: WARFARIN
  11. PANTOPRAZOLE [Concomitant]
     Active Substance: PANTOPRAZOLE
     Dosage: 40 MG, OD
     Dates: start: 201902
  12. SPIRONOLACTONE. [Concomitant]
     Active Substance: SPIRONOLACTONE
     Dosage: 25 MG, OD
     Dates: start: 201902
  13. MAGLUCATE [Concomitant]
     Dosage: 500 MG, BID
     Dates: start: 201902

REACTIONS (10)
  - Staphylococcal infection [Recovered/Resolved]
  - Tachycardia [Recovered/Resolved]
  - Catheter management [Recovered/Resolved]
  - Vascular device infection [Recovered/Resolved]
  - Sepsis [Recovered/Resolved]
  - Chills [Recovered/Resolved]
  - Dyspnoea [Recovered/Resolved]
  - Palpitations [Recovered/Resolved]
  - Blood culture positive [Recovered/Resolved]
  - Malaise [Recovered/Resolved]

NARRATIVE: CASE EVENT DATE: 201907
